FAERS Safety Report 25917720 (Version 2)
Quarter: 2025Q4

REPORT INFORMATION
  Report Type: Spontaneous
  Country: US (occurrence: US)
  Receive Date: 20251014
  Receipt Date: 20251111
  Transmission Date: 20260118
  Serious: No
  Sender: Kenvue
  Company Number: US-KENVUE-20250912093

PATIENT
  Age: 8 Year
  Sex: Male

DRUGS (1)
  1. CHILDRENS MOTRIN [Suspect]
     Active Substance: IBUPROFEN
     Indication: Product used for unknown indication
     Dosage: MOM GAVE 10ML, AFTER AN HOUR AND 30 MINUTES, PATIENT RECEIVED 10ML MORE. EARLIER THIS MORNING, AROUN
     Route: 065
     Dates: start: 20250917

REACTIONS (2)
  - Extra dose administered [Unknown]
  - Product label issue [Unknown]

NARRATIVE: CASE EVENT DATE: 20250917
